FAERS Safety Report 13567168 (Version 3)
Quarter: 2017Q4

REPORT INFORMATION
  Report Type: Spontaneous
  Country: BR (occurrence: BR)
  Receive Date: 20170522
  Receipt Date: 20171221
  Transmission Date: 20180320
  Serious: Yes (Death, Hospitalization, Other)
  Sender: FDA-Public Use
  Company Number: BR-ROCHE-1937357

PATIENT
  Age: 81 Year
  Sex: Female
  Weight: 53 kg

DRUGS (6)
  1. MABTHERA [Suspect]
     Active Substance: RITUXIMAB
     Indication: B-CELL LYMPHOMA
     Dosage: LAST DOSE PRIOR TO SAE ON 13/FEB/2017
     Route: 042
     Dates: start: 20170213, end: 20170213
  2. FAULDVINCRI [Suspect]
     Active Substance: VINCRISTINE SULFATE
     Indication: B-CELL LYMPHOMA
     Route: 042
     Dates: start: 20170213, end: 20170213
  3. EQUITAM (BRAZIL) [Concomitant]
  4. GENUXAL [Suspect]
     Active Substance: CYCLOPHOSPHAMIDE
     Indication: B-CELL LYMPHOMA
     Route: 042
     Dates: start: 20170213, end: 20170213
  5. PURAN [Concomitant]
     Active Substance: LEVOTHYROXINE SODIUM
  6. ADRIABLASTINA [Suspect]
     Active Substance: DOXORUBICIN
     Indication: B-CELL LYMPHOMA
     Route: 042
     Dates: start: 20170213, end: 20170213

REACTIONS (9)
  - Death [Fatal]
  - Escherichia infection [Recovering/Resolving]
  - General physical health deterioration [Unknown]
  - Hyponatraemia [Recovered/Resolved]
  - Diarrhoea [Unknown]
  - Gastrointestinal haemorrhage [Unknown]
  - Thrombocytopenia [Unknown]
  - Anaemia [Unknown]
  - Febrile neutropenia [Unknown]

NARRATIVE: CASE EVENT DATE: 20170225
